FAERS Safety Report 9242339 (Version 4)
Quarter: 2015Q2

REPORT INFORMATION
  Report Type: Spontaneous
  Country: US (occurrence: US)
  Receive Date: 20130419
  Receipt Date: 20150525
  Transmission Date: 20150821
  Serious: Yes (Congenital Anomaly, Other)
  Sender: FDA-Public Use
  Company Number: US-JNJFOC-20130306336

PATIENT
  Sex: Male

DRUGS (14)
  1. AMBIEN [Suspect]
     Active Substance: ZOLPIDEM TARTRATE
     Indication: FOETAL EXPOSURE DURING PREGNANCY
     Route: 064
  2. DOXYCYCLINE. [Suspect]
     Active Substance: DOXYCYCLINE
     Indication: FOETAL EXPOSURE DURING PREGNANCY
     Route: 064
  3. LORAZEPAM. [Suspect]
     Active Substance: LORAZEPAM
     Indication: FOETAL EXPOSURE DURING PREGNANCY
     Route: 064
  4. PAMPRIN [Suspect]
     Active Substance: IBUPROFEN
     Indication: FOETAL EXPOSURE DURING PREGNANCY
     Route: 064
  5. MIDRIN [Suspect]
     Active Substance: ACETAMINOPHEN\DICHLORALPHENAZONE\ISOMETHEPTENE
     Indication: FOETAL EXPOSURE DURING PREGNANCY
     Route: 064
  6. NATALCARE [Concomitant]
     Indication: FOETAL EXPOSURE DURING PREGNANCY
     Route: 064
  7. TOPAMAX [Suspect]
     Active Substance: TOPIRAMATE
     Indication: FOETAL EXPOSURE DURING PREGNANCY
     Route: 064
     Dates: start: 20040212, end: 20041108
  8. NOVOLOG [Suspect]
     Active Substance: INSULIN ASPART
     Indication: FOETAL EXPOSURE DURING PREGNANCY
     Route: 064
  9. MICONAZOLE [Suspect]
     Active Substance: MICONAZOLE
     Indication: FOETAL EXPOSURE DURING PREGNANCY
     Route: 064
  10. CLONAZEPAM. [Suspect]
     Active Substance: CLONAZEPAM
     Indication: FOETAL EXPOSURE DURING PREGNANCY
     Route: 064
  11. LEVOTHYROXINE [Suspect]
     Active Substance: LEVOTHYROXINE
     Indication: FOETAL EXPOSURE DURING PREGNANCY
     Route: 064
  12. METROGEL [Suspect]
     Active Substance: METRONIDAZOLE
     Indication: FOETAL EXPOSURE DURING PREGNANCY
     Route: 064
  13. ALBUTEROL. [Suspect]
     Active Substance: ALBUTEROL
     Indication: FOETAL EXPOSURE DURING PREGNANCY
     Route: 064
  14. KLOR-CON [Suspect]
     Active Substance: POTASSIUM CHLORIDE
     Indication: FOETAL EXPOSURE DURING PREGNANCY
     Route: 064

REACTIONS (3)
  - Otitis media chronic [Unknown]
  - Emotional distress [Unknown]
  - Cleft lip and palate [Unknown]
